FAERS Safety Report 4830151-9 (Version None)
Quarter: 2005Q4

REPORT INFORMATION
  Report Type: 
  Country: None (occurrence: None)
  Receive Date: 20051117
  Receipt Date: 20051005
  Transmission Date: 20060501
  Serious: Yes (Hospitalization, Other)
  Sender: FDA-Public Use
  Company Number: US-MERCK-0510USA04774

PATIENT
  Age: 44 Year
  Sex: Male
  Weight: 155 kg

DRUGS (1)
  1. VIOXX [Suspect]
     Indication: PAIN
     Route: 048
     Dates: start: 19960101

REACTIONS (23)
  - ADVERSE EVENT [None]
  - ARTHROPATHY [None]
  - CARDIOVASCULAR DISORDER [None]
  - CHEST PAIN [None]
  - CHRONIC OBSTRUCTIVE PULMONARY DISEASE [None]
  - DEPRESSION [None]
  - DYSPNOEA [None]
  - FLUID RETENTION [None]
  - GASTRIC VARICES [None]
  - HAEMOLYTIC ANAEMIA [None]
  - HEPATIC CIRRHOSIS [None]
  - HEPATIC FAILURE [None]
  - HEPATITIS C [None]
  - HEPATITIS CHRONIC ACTIVE [None]
  - IMMUNODEFICIENCY [None]
  - OVERDOSE [None]
  - PANCYTOPENIA [None]
  - PEPTIC ULCER HAEMORRHAGE [None]
  - PROTHROMBIN TIME PROLONGED [None]
  - TREMOR [None]
  - ULCER HAEMORRHAGE [None]
  - UPPER GASTROINTESTINAL HAEMORRHAGE [None]
  - WOUND INFECTION STAPHYLOCOCCAL [None]
